FAERS Safety Report 9405640 (Version 1)
Quarter: 2013Q3

REPORT INFORMATION
  Report Type: Spontaneous
  Country: ES (occurrence: ES)
  Receive Date: 20130717
  Receipt Date: 20130717
  Transmission Date: 20140515
  Serious: Yes (Other)
  Sender: FDA-Public Use
  Company Number: ES-MERCK-1307ESP007087

PATIENT
  Age: 62 Year
  Sex: Female

DRUGS (6)
  1. EZETIMIBE [Suspect]
     Indication: HYPERCHOLESTEROLAEMIA
     Dosage: 10 MG, QD (1 IN 1 DAYS)
     Route: 048
     Dates: start: 20130424, end: 20130427
  2. PROVISACOR [Concomitant]
     Dosage: 20 MG, QD (1 PER 1 DAYS)
     Route: 048
  3. DUOPLAVIN [Concomitant]
     Dosage: 75MG/100MG 1 IN 1 DAYS
     Route: 048
  4. COROPRES [Concomitant]
     Dosage: 3.25 MG, BID (2 IN 1 DAYS)
     Route: 048
  5. ACOVIL [Concomitant]
     Dosage: 2.5 MG, QD (1 IN 1 DAYS)
     Route: 048
  6. OMEPRAZOLE [Concomitant]
     Dosage: UNK

REACTIONS (2)
  - Odynophagia [Recovered/Resolved]
  - Thoracoplasty [Recovered/Resolved]
